FAERS Safety Report 12730149 (Version 8)
Quarter: 2017Q4

REPORT INFORMATION
  Report Type: Spontaneous
  Country: US (occurrence: US)
  Receive Date: 20160909
  Receipt Date: 20171027
  Transmission Date: 20180320
  Serious: Yes (Life-Threatening, Hospitalization)
  Sender: FDA-Public Use
  Company Number: US-ACTELION-A-US2016-141783

PATIENT
  Age: 66 Year
  Sex: Female
  Weight: 68.93 kg

DRUGS (5)
  1. VELETRI [Suspect]
     Active Substance: EPOPROSTENOL
     Indication: PULMONARY ARTERIAL HYPERTENSION
     Dosage: 65 NG/KG, PER MIN
     Route: 042
  2. VELETRI [Suspect]
     Active Substance: EPOPROSTENOL
     Dosage: 57 NG/KG, PER MIN
     Route: 042
     Dates: start: 201110
  3. DILTIAZEM. [Concomitant]
     Active Substance: DILTIAZEM
  4. COUMADIN [Concomitant]
     Active Substance: WARFARIN SODIUM
  5. VELETRI [Suspect]
     Active Substance: EPOPROSTENOL
     Dosage: 60 NG/KG, PER MIN
     Route: 042

REACTIONS (20)
  - Flushing [Unknown]
  - Escherichia sepsis [Recovered/Resolved]
  - Sepsis [Unknown]
  - Right ventricular failure [Unknown]
  - Pain in jaw [Unknown]
  - Nausea [Unknown]
  - Peripheral swelling [Unknown]
  - Palpitations [Unknown]
  - Drug dose omission [Recovered/Resolved]
  - Swelling face [Unknown]
  - Catheter site discharge [Unknown]
  - Urinary tract infection [Unknown]
  - Device malfunction [Recovered/Resolved]
  - Diarrhoea [Unknown]
  - Headache [Unknown]
  - Confusional state [Recovered/Resolved]
  - Dyspnoea exertional [Unknown]
  - Device allergy [Unknown]
  - Catheter site erythema [Unknown]
  - Dermatitis contact [Unknown]

NARRATIVE: CASE EVENT DATE: 20160824
